FAERS Safety Report 19233652 (Version 2)
Quarter: 2021Q3

REPORT INFORMATION
  Report Type: Spontaneous
  Country: GB (occurrence: GB)
  Receive Date: 20210507
  Receipt Date: 20210722
  Transmission Date: 20211014
  Serious: Yes (Congenital Anomaly)
  Sender: FDA-Public Use
  Company Number: GB-TAKEDA-2021TJP021291

PATIENT
  Age: 29 Year
  Sex: Female
  Weight: 112 kg

DRUGS (1)
  1. ZOTON [Suspect]
     Active Substance: LANSOPRAZOLE
     Indication: GASTRIC BYPASS
     Dosage: 30 MILLIGRAM, DAILY
     Route: 064
     Dates: start: 20160503, end: 20210416

REACTIONS (3)
  - Off label use [Unknown]
  - Maternal exposure during pregnancy [Not Recovered/Not Resolved]
  - Foetal cardiac disorder [Not Recovered/Not Resolved]
